FAERS Safety Report 8608893-9 (Version None)
Quarter: 2012Q3

REPORT INFORMATION
  Report Type: 
  Country: None (occurrence: None)
  Receive Date: 20120821
  Receipt Date: 20120808
  Transmission Date: 20120928
  Serious: Yes (Hospitalization)
  Sender: FDA-Public Use
  Company Number: JP-CELGENEUS-087-21880-12072547

PATIENT

DRUGS (20)
  1. DEXAMETHASONE ACETATE [Suspect]
     Indication: MULTIPLE MYELOMA
     Route: 065
     Dates: start: 20120612, end: 20120719
  2. DEXAMETHASONE ACETATE [Suspect]
     Dates: start: 20120724
  3. AMLODIPINE BESYLATE [Concomitant]
     Route: 065
     Dates: start: 20110813
  4. REVLIMID [Suspect]
     Indication: MULTIPLE MYELOMA
     Dosage: 10 MILLIGRAM
     Route: 048
     Dates: start: 20120710, end: 20120719
  5. REVLIMID [Suspect]
     Route: 048
     Dates: start: 20120724
  6. ASPIRIN [Concomitant]
     Route: 065
     Dates: start: 20120724
  7. ACYCLOVIR [Concomitant]
     Route: 065
     Dates: start: 20110810
  8. ELOTUZUMAB [Suspect]
     Indication: MULTIPLE MYELOMA
     Route: 065
  9. ZOLEDRONIC ACID HYDRATE [Concomitant]
     Route: 065
     Dates: start: 20120702, end: 20120702
  10. ASPIRIN [Concomitant]
     Route: 065
     Dates: start: 20120612, end: 20120719
  11. INDOMETHACIN [Concomitant]
     Route: 065
     Dates: start: 20111003
  12. TELMISARTAN [Concomitant]
     Route: 065
     Dates: start: 20110813
  13. ISOSORBIDE DINITRATE [Concomitant]
     Route: 065
     Dates: start: 20110813
  14. CELESTAMINE TAB [Concomitant]
     Route: 065
     Dates: start: 20120717
  15. ALLOPURINOL [Concomitant]
     Route: 065
     Dates: start: 20110813
  16. DAIFEN (SULFAMETHOXAZOLE, TRIMETHOPRIM) [Concomitant]
     Route: 065
     Dates: start: 20110808
  17. LANSOPRAZOLE [Concomitant]
     Route: 065
     Dates: start: 20110808
  18. TIARAMIDE HYDROCHLORIDE [Concomitant]
     Route: 065
     Dates: start: 20120704, end: 20120706
  19. SUCRALFATE [Concomitant]
     Route: 065
     Dates: start: 20120717
  20. BEZAFIBRATE [Concomitant]
     Route: 065
     Dates: start: 20110713

REACTIONS (1)
  - HYPONATRAEMIA [None]
